FAERS Safety Report 12135078 (Version 1)
Quarter: 2016Q1

REPORT INFORMATION
  Report Type: Report from Study
  Country: CH (occurrence: CH)
  Receive Date: 20160301
  Receipt Date: 20160301
  Transmission Date: 20160526
  Serious: Yes (Death)
  Sender: FDA-Public Use
  Company Number: CH-RARE DISEASE THERAPEUTICS, INC.-1048551

PATIENT
  Age: 39 Year
  Sex: Female

DRUGS (4)
  1. FOLINIC ACID [Concomitant]
     Active Substance: LEUCOVORIN
     Route: 048
  2. CYSTADANE [Suspect]
     Active Substance: BETAINE
     Indication: VITAMIN B12 DEFICIENCY
     Route: 048
  3. HYDROXOCOBALAMIN [Concomitant]
     Active Substance: HYDROXOCOBALAMIN
     Route: 030
  4. L-CARNITINE [Concomitant]
     Active Substance: LEVOCARNITINE
     Route: 048

REACTIONS (5)
  - Abortion spontaneous [None]
  - Dystonia [None]
  - Overdose [None]
  - Exposure during pregnancy [None]
  - Normal newborn [None]
